FAERS Safety Report 24196150 (Version 1)
Quarter: 2024Q3

REPORT INFORMATION
  Report Type: Spontaneous
  Country: GB (occurrence: GB)
  Receive Date: 20240809
  Receipt Date: 20240809
  Transmission Date: 20241017
  Serious: Yes (Death)
  Sender: INCYTE
  Company Number: GB-002147023-NVSC2024GB156604

PATIENT

DRUGS (1)
  1. RUXOLITINIB [Suspect]
     Active Substance: RUXOLITINIB
     Indication: Product used for unknown indication
     Dosage: 15 MG, BID (BLIST TAB 56)
     Route: 048

REACTIONS (1)
  - Death [Fatal]
